FAERS Safety Report 9595255 (Version 3)
Quarter: 2013Q4

REPORT INFORMATION
  Report Type: Spontaneous
  Country: US (occurrence: US)
  Receive Date: 20131004
  Receipt Date: 20131022
  Transmission Date: 20140711
  Serious: Yes (Death, Other)
  Sender: FDA-Public Use
  Company Number: US-PFIZER INC-2010133060

PATIENT
  Age: 79 Year
  Sex: Female

DRUGS (1)
  1. SUTENT [Suspect]
     Indication: METASTATIC RENAL CELL CARCINOMA
     Dosage: 50 MG, CYCLIC (1 CAPSULE DAILY, CYCLE 4 WEEKS ON + 2 OFF)
     Route: 048
     Dates: start: 20100805, end: 20130918

REACTIONS (7)
  - Cerebellar haemorrhage [Fatal]
  - Nausea [Unknown]
  - Fatigue [Unknown]
  - Diarrhoea [Unknown]
  - Pleural effusion [Unknown]
  - Disease progression [Unknown]
  - Metastatic renal cell carcinoma [Unknown]
